FAERS Safety Report 10234986 (Version 1)
Quarter: 2014Q2

REPORT INFORMATION
  Report Type: Spontaneous
  Country: GB (occurrence: GB)
  Receive Date: 20140613
  Receipt Date: 20140613
  Transmission Date: 20141212
  Serious: Yes (Other)
  Sender: FDA-Public Use
  Company Number: GB-TEVA-486868ISR

PATIENT
  Age: 51 Year
  Sex: Female
  Weight: 70.76 kg

DRUGS (7)
  1. TAMOXIFEN [Suspect]
     Indication: BREAST CANCER
     Route: 048
     Dates: start: 20110220
  2. CLONIDINE [Concomitant]
  3. COD LIVER OIL [Concomitant]
  4. GLUCOSAMINE [Concomitant]
  5. IBUPROFEN [Concomitant]
  6. OMEPRAZOLE [Concomitant]
  7. STARFLOWER OIL [Concomitant]

REACTIONS (1)
  - Epicondylitis [Not Recovered/Not Resolved]
